FAERS Safety Report 19642475 (Version 16)
Quarter: 2023Q2

REPORT INFORMATION
  Report Type: Spontaneous
  Country: IN (occurrence: IN)
  Receive Date: 20210730
  Receipt Date: 20230530
  Transmission Date: 20230722
  Serious: Yes (Other)
  Sender: FDA-Public Use
  Company Number: IN-PFIZER INC-2021068623

PATIENT
  Age: 52 Year
  Sex: Female

DRUGS (16)
  1. PALBOCICLIB [Suspect]
     Active Substance: PALBOCICLIB
     Indication: Breast cancer metastatic
     Dosage: 125 MG, 1X/DAY
     Route: 048
     Dates: start: 20200520
  2. PALBOCICLIB [Suspect]
     Active Substance: PALBOCICLIB
     Dosage: UNK
     Dates: start: 202106
  3. PALBOCICLIB [Suspect]
     Active Substance: PALBOCICLIB
     Dosage: 125 MG, 1X/DAY
     Route: 048
     Dates: start: 20210703
  4. PALBOCICLIB [Suspect]
     Active Substance: PALBOCICLIB
     Dosage: 125 MG, 1X/DAY
     Route: 048
     Dates: start: 20210717
  5. PALBOCICLIB [Suspect]
     Active Substance: PALBOCICLIB
     Dosage: UNK, CYCLIC (FOR 3 WEEKS THEN 1 WEEK OFF)
     Dates: start: 20220718
  6. PALBOCICLIB [Suspect]
     Active Substance: PALBOCICLIB
     Dosage: 125 MG, CYCLIC (OD 21 DAYS THEN 1 WEEK OFF)
     Route: 048
     Dates: start: 20230410
  7. LETROZOLE [Concomitant]
     Active Substance: LETROZOLE
     Dosage: UNK, 1X/DAY (ONCE IN A DAY, WITH OR WITHOUT FOOD, ORAL 60 DAYS)
     Route: 048
  8. LETROZOLE [Concomitant]
     Active Substance: LETROZOLE
     Dosage: UNK
     Dates: start: 202106
  9. CCM [Concomitant]
     Dosage: UNK
  10. IDROFOS [Concomitant]
     Dosage: 1 DF, MONTHLY
  11. SHELCAL [CALCIUM CARBONATE;COLECALCIFEROL] [Concomitant]
     Dosage: UNK
  12. NEUKINE [Concomitant]
     Dosage: UNK
  13. MINERALS\VITAMINS [Concomitant]
     Active Substance: MINERALS\VITAMINS
     Dosage: UNK
  14. MEGASTY [Concomitant]
     Dosage: UNK
  15. BUPATCH [Concomitant]
     Dosage: UNK
  16. LYRICA [Concomitant]
     Active Substance: PREGABALIN
     Dosage: UNK

REACTIONS (26)
  - Renal impairment [Unknown]
  - Neuropathy peripheral [Unknown]
  - Diabetes mellitus inadequate control [Unknown]
  - Jaw fracture [Unknown]
  - Haemoglobin decreased [Unknown]
  - Blood urea increased [Unknown]
  - Impaired healing [Unknown]
  - Arthralgia [Unknown]
  - Blood cholesterol increased [Unknown]
  - Pain [Unknown]
  - Decreased appetite [Unknown]
  - Asthenia [Unknown]
  - Blood triglycerides increased [Unknown]
  - Glucose urine [Unknown]
  - C-reactive protein increased [Unknown]
  - COVID-19 [Recovered/Resolved]
  - Pain in extremity [Unknown]
  - Blood iron decreased [Unknown]
  - Blood creatinine increased [Unknown]
  - Blood cholesterol decreased [Unknown]
  - Glycosylated haemoglobin increased [Unknown]
  - White blood cell count decreased [Unknown]
  - Neutrophil count decreased [Unknown]
  - Blood glucose increased [Unknown]
  - Blood glucose abnormal [Unknown]
  - White blood cells urine positive [Unknown]

NARRATIVE: CASE EVENT DATE: 20211017
